FAERS Safety Report 9274872 (Version 1)
Quarter: 2013Q2

REPORT INFORMATION
  Report Type: Spontaneous
  Country: US (occurrence: US)
  Receive Date: 20130507
  Receipt Date: 20130507
  Transmission Date: 20140414
  Serious: Yes (Hospitalization)
  Sender: FDA-Public Use
  Company Number: US-BAYER-2013-055281

PATIENT
  Age: 21 Year
  Sex: Female

DRUGS (9)
  1. YAZ [Suspect]
  2. BEYAZ [Suspect]
  3. OCELLA [Suspect]
  4. SYNTHROID [Concomitant]
     Dosage: UNK
     Dates: start: 20110819
  5. SYNTHROID [Concomitant]
     Dosage: UNK
     Dates: start: 20111025
  6. VALACICLOVIR HYDROCHLORIDE [Concomitant]
     Dosage: UNK
     Dates: start: 20110818
  7. CHLORPHENIRAMINE W/HYDROCODONE [Concomitant]
     Dosage: UNK
     Dates: start: 20111026
  8. PROAIR HFA [Concomitant]
     Dosage: UNK
     Dates: start: 20111026
  9. AZITHROMYCIN [Concomitant]
     Dosage: UNK
     Dates: start: 20111026

REACTIONS (1)
  - Pulmonary embolism [None]
